FAERS Safety Report 4897046-6 (Version None)
Quarter: 2006Q1

REPORT INFORMATION
  Report Type: 
  Country: None (occurrence: None)
  Receive Date: 20060127
  Receipt Date: 20060118
  Transmission Date: 20060701
  Serious: Yes (Hospitalization, Other)
  Sender: FDA-Public Use
  Company Number: 2005-07-1659

PATIENT
  Age: 77 Year
  Sex: Female

DRUGS (27)
  1. BETAMETHASONE [Suspect]
     Dosage: SEE IMAGE
     Route: 047
     Dates: start: 20030301, end: 20030701
  2. BETAMETHASONE [Suspect]
     Dosage: SEE IMAGE
     Route: 047
     Dates: start: 20031006, end: 20031009
  3. BETAMETHASONE [Suspect]
     Dosage: SEE IMAGE
     Route: 047
     Dates: start: 20030301, end: 20031211
  4. BETAMETHASONE [Suspect]
     Dosage: SEE IMAGE
     Route: 047
     Dates: start: 20031001, end: 20031211
  5. BETAMETHASONE SODIUM PHOSPHATE [Suspect]
     Dosage: ORAL
     Route: 048
     Dates: start: 20030601
  6. OXYTETRACYCILNE HYDROCHLORIDE [Suspect]
     Dosage: SEE IMAGE
     Route: 047
     Dates: start: 20030522, end: 20030605
  7. OXYTETRACYCILNE HYDROCHLORIDE [Suspect]
     Dosage: SEE IMAGE
     Route: 047
     Dates: start: 20030522, end: 20030922
  8. OXYTETRACYCILNE HYDROCHLORIDE [Suspect]
     Dosage: SEE IMAGE
     Route: 047
     Dates: start: 20030918, end: 20030922
  9. LEVOFLOXACIN OPHTHALMIC SOLUTION [Suspect]
     Dosage: SEE IMAGE
     Route: 047
     Dates: start: 20030301
  10. LEVOFLOXACIN OPHTHALMIC SOLUTION [Suspect]
     Dosage: SEE IMAGE
     Route: 047
     Dates: start: 20030618
  11. OFLOXACIN OPHTHALMIC OINTMENT [Suspect]
     Dosage: SEE IMAGE
     Route: 047
     Dates: start: 20021220
  12. OFLOXACIN OPHTHALMIC OINTMENT [Suspect]
     Dosage: SEE IMAGE
     Route: 047
     Dates: start: 20030605
  13. CEFDINIR ORAL [Suspect]
     Dosage: SEE IMAGE
     Route: 048
     Dates: start: 20030522, end: 20030529
  14. CEFDINIR ORAL [Suspect]
     Dosage: SEE IMAGE
     Route: 048
     Dates: start: 20030522
  15. CEFDINIR ORAL [Suspect]
     Dosage: SEE IMAGE
     Route: 048
     Dates: start: 20030605
  16. CEFDINIR ORAL [Suspect]
     Dosage: SEE IMAGE
     Route: 048
     Dates: start: 20030618
  17. CEFMENOXIME OPHTHALMIC SOLUTION [Suspect]
     Dosage: SEE IMAGE
     Route: 047
     Dates: start: 20030605, end: 20030918
  18. CEFMENOXIME OPHTHALMIC SOLUTION [Suspect]
     Dosage: SEE IMAGE
     Route: 047
     Dates: start: 20030605
  19. CEFMENOXIME OPHTHALMIC SOLUTION [Suspect]
     Dosage: SEE IMAGE
     Route: 047
     Dates: start: 20040122
  20. FLUCYTOSINE ORALS [Suspect]
     Dosage: SEE IMAGE
     Route: 047
     Dates: start: 20030807, end: 20030918
  21. FLUCYTOSINE ORALS [Suspect]
     Dosage: SEE IMAGE
     Route: 047
     Dates: start: 20030807
  22. FLUCYTOSINE ORALS [Suspect]
     Dosage: SEE IMAGE
     Route: 047
     Dates: start: 20031009
  23. MINOCYCLINE ORAL [Suspect]
     Dosage: SEE IMAGE
     Route: 048
     Dates: start: 20030922
  24. MINOCYCLINE ORAL [Suspect]
     Dosage: SEE IMAGE
     Route: 048
     Dates: start: 20040122
  25. ITRACONAZOLE [Suspect]
     Dosage: ORAL
     Route: 048
  26. MICONAZOLE [Concomitant]
  27. FLUOROMETHOLONE OPHTHALMIC SOULTION [Concomitant]

REACTIONS (19)
  - ANTI-SS-A ANTIBODY POSITIVE [None]
  - ASPERGILLOSIS [None]
  - AUTOIMMUNE DISORDER [None]
  - CANDIDIASIS [None]
  - CATHETER RELATED COMPLICATION [None]
  - COMPLICATIONS OF TRANSPLANT SURGERY [None]
  - CORNEAL EPITHELIUM DEFECT [None]
  - CORNEAL TRANSPLANT [None]
  - CORYNEBACTERIUM INFECTION [None]
  - DRUG RESISTANCE [None]
  - DRUG TOXICITY [None]
  - EYE INFLAMMATION [None]
  - MEDICAL DEVICE COMPLICATION [None]
  - NAUSEA [None]
  - PATHOGEN RESISTANCE [None]
  - PUNCTATE KERATITIS [None]
  - RHEUMATOID FACTOR INCREASED [None]
  - SCOTOMA [None]
  - ULCERATIVE KERATITIS [None]
